FAERS Safety Report 13414421 (Version 2)
Quarter: 2017Q2

REPORT INFORMATION
  Report Type: Report from Study
  Country: US (occurrence: US)
  Receive Date: 20170407
  Receipt Date: 20170428
  Transmission Date: 20170830
  Serious: Yes (Other)
  Sender: FDA-Public Use
  Company Number: US-SAOL THERAPEUTICS-2017SAO00647

PATIENT
  Sex: Female
  Weight: 103 kg

DRUGS (10)
  1. BUPIVACAINE. [Suspect]
     Active Substance: BUPIVACAINE
     Dosage: 20.852 MG, \DAY
     Route: 037
     Dates: start: 20111027
  2. DILAUDID [Suspect]
     Active Substance: HYDROMORPHONE HYDROCHLORIDE
     Dosage: 1.7509 MG, \DAY
     Route: 037
     Dates: start: 20111027
  3. DILAUDID [Suspect]
     Active Substance: HYDROMORPHONE HYDROCHLORIDE
     Dosage: 3.4754 MG, \DAY
     Route: 037
     Dates: end: 20111027
  4. COMPOUNDED BACLOFEN [Suspect]
     Active Substance: BACLOFEN
     Dosage: 280.15 ?G, \DAY
     Route: 037
     Dates: start: 20111027
  5. DROPERIDOL. [Suspect]
     Active Substance: DROPERIDOL
     Dosage: 86.88 ?G, \DAY
     Route: 037
     Dates: start: 20111027
  6. CLONIDINE. [Suspect]
     Active Substance: CLONIDINE
     Dosage: 278.03 ?G, \DAY
     Route: 037
     Dates: start: 20111027
  7. COMPOUNDED BACLOFEN [Suspect]
     Active Substance: BACLOFEN
     Dosage: 556.06 ?G, \DAY
     Route: 037
     Dates: start: 20111027
  8. BUPIVACAINE. [Suspect]
     Active Substance: BUPIVACAINE
     Dosage: 10.506 MG, \DAY
     Route: 037
     Dates: start: 20111027
  9. CLONIDINE. [Suspect]
     Active Substance: CLONIDINE
     Dosage: 140.07 ?G, \DAY
     Route: 037
     Dates: start: 20111027
  10. DROPERIDOL. [Suspect]
     Active Substance: DROPERIDOL
     Dosage: 43.77 ?G, \DAY
     Route: 037
     Dates: start: 20111027

REACTIONS (4)
  - Drug withdrawal syndrome [Recovered/Resolved]
  - Pain [Recovered/Resolved]
  - Malaise [Recovered/Resolved]
  - Drug dose omission [Recovered/Resolved]
